FAERS Safety Report 12568947 (Version 1)
Quarter: 2016Q3

REPORT INFORMATION
  Report Type: Spontaneous
  Country: US (occurrence: US)
  Receive Date: 20160719
  Receipt Date: 20160719
  Transmission Date: 20161109
  Serious: No
  Sender: FDA-Public Use
  Company Number: US-BEH-2016070668

PATIENT
  Sex: Female
  Weight: 71.66 kg

DRUGS (22)
  1. TEGRETOL [Concomitant]
     Active Substance: CARBAMAZEPINE
  2. NEXIUM [Concomitant]
     Active Substance: ESOMEPRAZOLE MAGNESIUM
  3. HYDROCORTISONE. [Concomitant]
     Active Substance: HYDROCORTISONE
  4. CYANOCOBALAMIN. [Concomitant]
     Active Substance: CYANOCOBALAMIN
  5. TOPAMAX [Concomitant]
     Active Substance: TOPIRAMATE
  6. FOLIC ACID. [Concomitant]
     Active Substance: FOLIC ACID
  7. ZIPSOR [Concomitant]
     Active Substance: DICLOFENAC POTASSIUM
  8. TRIAMCINOLONE [Concomitant]
     Active Substance: TRIAMCINOLONE
  9. HIZENTRA [Suspect]
     Active Substance: HUMAN IMMUNOGLOBULIN G
     Indication: IMMUNODEFICIENCY COMMON VARIABLE
     Dosage: 4 G, TIW
     Route: 058
  10. DIPHENHYDRAMINE. [Concomitant]
     Active Substance: DIPHENHYDRAMINE
  11. ACETAMINOPHEN. [Concomitant]
     Active Substance: ACETAMINOPHEN
  12. XANAX [Concomitant]
     Active Substance: ALPRAZOLAM
  13. FENTANYL. [Concomitant]
     Active Substance: FENTANYL
  14. LIDOCAINE. [Concomitant]
     Active Substance: LIDOCAINE
  15. SYNTHROID [Concomitant]
     Active Substance: LEVOTHYROXINE SODIUM
  16. ZYRTEC [Concomitant]
     Active Substance: CETIRIZINE HYDROCHLORIDE
  17. ZOFRAN [Concomitant]
     Active Substance: ONDANSETRON HYDROCHLORIDE
  18. EPIPEN [Concomitant]
     Active Substance: EPINEPHRINE
  19. SINGULAIR [Concomitant]
     Active Substance: MONTELUKAST SODIUM
  20. NEURONTIN [Concomitant]
     Active Substance: GABAPENTIN
  21. ALVESCO [Concomitant]
     Active Substance: CICLESONIDE
  22. VITAMIN D                          /00107901/ [Concomitant]
     Active Substance: ERGOCALCIFEROL

REACTIONS (2)
  - Ill-defined disorder [Unknown]
  - Administration site bruise [Unknown]
